FAERS Safety Report 4375075-9 (Version None)
Quarter: 2004Q2

REPORT INFORMATION
  Report Type: 
  Country: None (occurrence: None)
  Receive Date: 20040603
  Receipt Date: 20040519
  Transmission Date: 20050107
  Serious: No
  Sender: FDA-Public Use
  Company Number: 2004AP02814

PATIENT
  Age: 25 Year
  Sex: Female

DRUGS (2)
  1. RHINOCORT [Suspect]
     Indication: SEASONAL ALLERGY
     Dosage: 128 MG DAILY IN
     Route: 045
     Dates: start: 20030912, end: 20030912
  2. CLARITIN [Suspect]
     Indication: CHRONIC SINUSITIS
     Dosage: 1 DF DAILY PO
     Route: 048

REACTIONS (2)
  - EPISTAXIS [None]
  - LOSS OF CONSCIOUSNESS [None]
